FAERS Safety Report 24212535 (Version 1)
Quarter: 2024Q3

REPORT INFORMATION
  Report Type: Spontaneous
  Country: GB (occurrence: GB)
  Receive Date: 20240815
  Receipt Date: 20240815
  Transmission Date: 20241017
  Serious: Yes (Other)
  Sender: HIKMA
  Company Number: None

PATIENT
  Sex: Female
  Weight: 85 kg

DRUGS (2)
  1. TEICOPLANIN [Suspect]
     Active Substance: TEICOPLANIN
     Indication: Infection
     Dosage: 1000 MILLIGRAM, BID
     Route: 042
     Dates: start: 20240805, end: 20240806
  2. VANCOMYCIN [Suspect]
     Active Substance: VANCOMYCIN
     Indication: Infection
     Dosage: 1500 MILLIGRAM, BID
     Route: 042
     Dates: start: 20240806, end: 20240806

REACTIONS (4)
  - Catheter site pain [Recovered/Resolved]
  - Urticaria [Unknown]
  - Vancomycin infusion reaction [Unknown]
  - Drug intolerance [Unknown]
